FAERS Safety Report 25312604 (Version 1)
Quarter: 2025Q2

REPORT INFORMATION
  Report Type: Spontaneous
  Country: AU (occurrence: AU)
  Receive Date: 20250514
  Receipt Date: 20250514
  Transmission Date: 20250716
  Serious: Yes (Other)
  Sender: PFIZER
  Company Number: AU-PFIZER INC-202500100326

PATIENT
  Sex: Female

DRUGS (5)
  1. LEVETIRACETAM [Suspect]
     Active Substance: LEVETIRACETAM
     Indication: Seizure
  2. LEVETIRACETAM [Suspect]
     Active Substance: LEVETIRACETAM
     Indication: Prophylaxis
  3. SIROLIMUS [Concomitant]
     Active Substance: SIROLIMUS
     Indication: Rhabdomyoma
     Dosage: 0.25 MG, 1X/DAY VIA A NASOGASTRIC TUBE ON DAY 3 OF LIFE
  4. SIROLIMUS [Concomitant]
     Active Substance: SIROLIMUS
     Dosage: 0.125 MG, 1X/DAY
  5. SIROLIMUS [Concomitant]
     Active Substance: SIROLIMUS
     Dosage: 0.125 MG, 1X/DAY

REACTIONS (2)
  - Neutropenia [Not Recovered/Not Resolved]
  - Off label use [Unknown]
